FAERS Safety Report 21055339 (Version 2)
Quarter: 2022Q3

REPORT INFORMATION
  Report Type: Other
  Country: US (occurrence: None)
  Receive Date: 20220708
  Receipt Date: 20220711
  Transmission Date: 20221027
  Serious: No
  Sender: FDA-Public Use
  Company Number: US-ROCHE-3134021

PATIENT
  Sex: Female

DRUGS (14)
  1. OCREVUS [Suspect]
     Active Substance: OCRELIZUMAB
     Indication: Primary progressive multiple sclerosis
     Dosage: ANTICIPATED DATE OF TREATMENT: 7/DEC/2020, LAST DATE OF TREATMENT: 01/AUG/2020
     Route: 065
  2. FOSAMAX [Concomitant]
     Active Substance: ALENDRONATE SODIUM
  3. AMOXIL [Concomitant]
     Active Substance: AMOXICILLIN
     Dates: start: 20200123
  4. AUGMENTIN [Concomitant]
     Active Substance: AMOXICILLIN\CLAVULANATE POTASSIUM
     Dates: start: 20191201
  5. VITAMIN C [Concomitant]
     Active Substance: ASCORBIC ACID
  6. ASPIRIN [Concomitant]
     Active Substance: ASPIRIN
  7. CALCIUM CARBONATE [Concomitant]
     Active Substance: CALCIUM CARBONATE
  8. VITAMIN D3 [Concomitant]
     Active Substance: CHOLECALCIFEROL
  9. NEURONTIN [Concomitant]
     Active Substance: GABAPENTIN
     Dates: start: 20200213
  10. ADVIL [Concomitant]
     Active Substance: IBUPROFEN
  11. LOVAZA [Concomitant]
     Active Substance: OMEGA-3-ACID ETHYL ESTERS
  12. ZOCOR [Concomitant]
     Active Substance: SIMVASTATIN
  13. CALAN (UNITED STATES) [Concomitant]
     Dates: start: 20200109
  14. CALAN (UNITED STATES) [Concomitant]

REACTIONS (1)
  - COVID-19 [Unknown]
